FAERS Safety Report 5478810-1 (Version None)
Quarter: 2007Q4

REPORT INFORMATION
  Report Type: 
  Country: None (occurrence: None)
  Receive Date: 20071002
  Receipt Date: 20070917
  Transmission Date: 20080405
  Serious: Yes (Hospitalization)
  Sender: FDA-Public Use
  Company Number: 430065K07USA

PATIENT
  Age: 46 Year
  Sex: Female

DRUGS (2)
  1. NOVANTRONE [Suspect]
     Indication: MULTIPLE SCLEROSIS
     Dosage: 1 IN 3 MONTHS, INTRAVENOUS (NOT OTHERWISE SPECIFIED)
     Route: 042
     Dates: start: 20030101, end: 20040101
  2. ANTIBIOTIC(ANTIBIOTICS) [Concomitant]

REACTIONS (3)
  - CLOSTRIDIAL INFECTION [None]
  - PNEUMONIA [None]
  - TOOTH INFECTION [None]
